FAERS Safety Report 14439916 (Version 1)
Quarter: 2018Q1

REPORT INFORMATION
  Report Type: Spontaneous
  Country: CH (occurrence: CH)
  Receive Date: 20180125
  Receipt Date: 20180125
  Transmission Date: 20180509
  Serious: Yes (Other)
  Sender: FDA-Public Use
  Company Number: CH-PFIZER INC-2018031499

PATIENT
  Sex: Female

DRUGS (1)
  1. DOSTINEX [Suspect]
     Active Substance: CABERGOLINE
     Indication: PROLACTIN-PRODUCING PITUITARY TUMOUR
     Dosage: UNK, WEEKLY (HALF TABLET)
     Route: 048

REACTIONS (6)
  - Confusional state [Unknown]
  - Vomiting [Unknown]
  - Dizziness [Unknown]
  - Cough [Unknown]
  - Sudden onset of sleep [Unknown]
  - Fatigue [Unknown]
